FAERS Safety Report 9443434 (Version 2)
Quarter: 2013Q3

REPORT INFORMATION
  Report Type: Spontaneous
  Country: JP (occurrence: JP)
  Receive Date: 20130806
  Receipt Date: 20130903
  Transmission Date: 20140515
  Serious: Yes (Hospitalization)
  Sender: FDA-Public Use
  Company Number: JP-GLAXOSMITHKLINE-B0912942A

PATIENT
  Age: 53 Year
  Sex: Female

DRUGS (11)
  1. LAMICTAL [Suspect]
     Indication: BIPOLAR I DISORDER
     Dosage: 25MG PER DAY
     Route: 048
     Dates: start: 20120310, end: 20120310
  2. LAMICTAL [Suspect]
     Indication: BIPOLAR I DISORDER
     Dosage: 25MG PER DAY
     Route: 048
     Dates: start: 20120312, end: 20120420
  3. LAMICTAL [Suspect]
     Indication: BIPOLAR I DISORDER
     Route: 048
     Dates: start: 20120421, end: 20120615
  4. LAMICTAL [Suspect]
     Indication: BIPOLAR I DISORDER
     Route: 048
     Dates: start: 20120616, end: 20120831
  5. LAMICTAL [Suspect]
     Indication: BIPOLAR I DISORDER
     Route: 048
     Dates: start: 20120901, end: 20120930
  6. LAMICTAL [Suspect]
     Indication: BIPOLAR I DISORDER
     Route: 048
     Dates: start: 20121001
  7. LIMAS [Concomitant]
     Route: 048
  8. GOODMIN [Concomitant]
     Dosage: .25MG PER DAY
     Route: 048
  9. QUAZEPAM [Concomitant]
     Route: 048
  10. SEROQUEL [Concomitant]
     Dosage: 25MG PER DAY
     Route: 048
  11. ABILIFY [Concomitant]
     Route: 048

REACTIONS (4)
  - Altered state of consciousness [Recovered/Resolved]
  - Overdose [Recovered/Resolved]
  - Mood swings [Unknown]
  - Irritability [Unknown]
